FAERS Safety Report 5848465-2 (Version None)
Quarter: 2008Q3

REPORT INFORMATION
  Report Type: 
  Country: None (occurrence: None)
  Receive Date: 20080815
  Receipt Date: 20080815
  Transmission Date: 20090109
  Serious: Yes (Hospitalization)
  Sender: FDA-Public Use
  Company Number: None

PATIENT
  Sex: Male
  Weight: 103.3 kg

DRUGS (2)
  1. RAPAMYCIN [Suspect]
     Indication: RECTAL CANCER METASTATIC
     Dosage: 16MG ONCE A WEEK PO
     Route: 048
     Dates: start: 20080730, end: 20080806
  2. KETOCONAZOLE [Suspect]
     Indication: RECTAL CANCER METASTATIC
     Dosage: 200MG ONCE A DAY PO
     Route: 048
     Dates: start: 20080805, end: 20080808

REACTIONS (3)
  - COUGH [None]
  - DYSPNOEA [None]
  - OXYGEN SATURATION DECREASED [None]
